FAERS Safety Report 20869268 (Version 1)
Quarter: 2022Q2

REPORT INFORMATION
  Report Type: Spontaneous
  Country: FR (occurrence: FR)
  Receive Date: 20220524
  Receipt Date: 20220524
  Transmission Date: 20220721
  Serious: Yes (Other)
  Sender: FDA-Public Use
  Company Number: None

PATIENT
  Age: 40 Year
  Sex: Male

DRUGS (2)
  1. LYRICA [Suspect]
     Active Substance: PREGABALIN
     Dosage: 2.4 G
     Route: 048
     Dates: start: 2019
  2. FENTANYL [Suspect]
     Active Substance: FENTANYL
     Dosage: 100 MICROGRAMS/HOUR (16.8 MG/42 CM?), 1 EVERY 3 DAYS
     Route: 062
     Dates: start: 2021

REACTIONS (2)
  - Overdose [Unknown]
  - Drug abuse [Not Recovered/Not Resolved]
